FAERS Safety Report 8862038 (Version 1)
Quarter: 2012Q4

REPORT INFORMATION
  Report Type: 
  Country: US (occurrence: US)
  Receive Date: 20121025
  Receipt Date: 20121025
  Transmission Date: 20130627
  Serious: No
  Sender: FDA-Public Use
  Company Number: US-TARO-2012P1048593

PATIENT
  Age: 63 Year
  Sex: Male
  Weight: 103.42 kg

DRUGS (5)
  1. CLOTRIMAZOLE [Suspect]
     Indication: FUNGAL INFECTION
     Route: 061
     Dates: start: 20120707, end: 201207
  2. VITAMIN DAILY SUPPLEMENT [Concomitant]
  3. LIPITOR [Concomitant]
     Route: 048
  4. ZESTORETIC [Concomitant]
     Route: 048
  5. PROSCAR [Concomitant]

REACTIONS (5)
  - Application site pain [Recovering/Resolving]
  - Application site irritation [Recovered/Resolved]
  - Application site fissure [Recovered/Resolved]
  - Drug ineffective [Recovered/Resolved]
  - Staphylococcal infection [Unknown]
